FAERS Safety Report 17846619 (Version 1)
Quarter: 2020Q2

REPORT INFORMATION
  Report Type: Spontaneous
  Country: US (occurrence: US)
  Receive Date: 20200601
  Receipt Date: 20200601
  Transmission Date: 20200714
  Serious: Yes (Hospitalization)
  Sender: FDA-Public Use
  Company Number: None

PATIENT
  Age: 56 Year
  Sex: Male

DRUGS (12)
  1. HYDROXYUREA. [Suspect]
     Active Substance: HYDROXYUREA
     Indication: POLYCYTHAEMIA
     Route: 048
  2. NOVOLOG [Concomitant]
     Active Substance: INSULIN ASPART
  3. ATORVASTATIN [Concomitant]
     Active Substance: ATORVASTATIN
  4. LISINOPRIL. [Concomitant]
     Active Substance: LISINOPRIL
  5. METFORMIN [Concomitant]
     Active Substance: METFORMIN HYDROCHLORIDE
  6. ASPIRIN. [Concomitant]
     Active Substance: ASPIRIN
  7. PLAVIX [Concomitant]
     Active Substance: CLOPIDOGREL BISULFATE
  8. BACTRIM [Concomitant]
     Active Substance: SULFAMETHOXAZOLE\TRIMETHOPRIM
  9. VICODIN [Concomitant]
     Active Substance: ACETAMINOPHEN\HYDROCODONE BITARTRATE
  10. TYLENOL [Concomitant]
     Active Substance: ACETAMINOPHEN
  11. LANTUS [Concomitant]
     Active Substance: INSULIN GLARGINE
  12. HUMALOG [Concomitant]
     Active Substance: INSULIN LISPRO

REACTIONS (1)
  - Osteomyelitis [None]

NARRATIVE: CASE EVENT DATE: 20200526
